FAERS Safety Report 6132311-6 (Version None)
Quarter: 2009Q1

REPORT INFORMATION
  Report Type: 
  Country: None (occurrence: None)
  Receive Date: 20090325
  Receipt Date: 20090320
  Transmission Date: 20090719
  Serious: Yes (Hospitalization)
  Sender: FDA-Public Use
  Company Number: US-GILEAD-2009-0020988

PATIENT
  Sex: Female
  Weight: 93.978 kg

DRUGS (1)
  1. LETAIRIS [Suspect]
     Indication: PULMONARY ARTERIAL HYPERTENSION
     Route: 048
     Dates: start: 20090226, end: 20090319

REACTIONS (4)
  - DYSPNOEA [None]
  - OEDEMA [None]
  - RENAL FAILURE [None]
  - WEIGHT INCREASED [None]
